FAERS Safety Report 8033512-2 (Version None)
Quarter: 2012Q1

REPORT INFORMATION
  Report Type: 
  Country: None (occurrence: None)
  Receive Date: 20120110
  Receipt Date: 20120103
  Transmission Date: 20120608
  Serious: Yes (Hospitalization)
  Sender: FDA-Public Use
  Company Number: FR-ROCHE-1027261

PATIENT
  Age: 61 Year
  Sex: Female

DRUGS (9)
  1. CORDARONE [Concomitant]
  2. PRIMPERAN (FRANCE) [Concomitant]
  3. LACTULOSE [Concomitant]
  4. TRAMADOL HCL [Concomitant]
  5. DURAGESIC-100 [Concomitant]
  6. AVASTIN [Suspect]
     Indication: CHOLANGITIS
     Dates: end: 20111115
  7. DELURSAN [Concomitant]
  8. PANTOPRAZOLE [Concomitant]
  9. ZOFRAN [Concomitant]

REACTIONS (3)
  - DISEASE PROGRESSION [None]
  - CHOLANGITIS [None]
  - GASTRITIS [None]
